FAERS Safety Report 8776482 (Version 1)
Quarter: 2012Q4

REPORT INFORMATION
  Report Type: 
  Country: NZ (occurrence: NZ)
  Receive Date: 20120910
  Receipt Date: 20120910
  Transmission Date: 20130627
  Serious: Yes (Other)
  Sender: FDA-Public Use
  Company Number: NZ-AMGEN-NZLSP2012056638

PATIENT
  Sex: Male

DRUGS (2)
  1. NEULASTIM [Suspect]
     Indication: NEUTROPENIA
     Dosage: UNK
  2. ANTINEOPLASTIC AGENTS [Concomitant]

REACTIONS (2)
  - Neutropenia [Unknown]
  - Drug ineffective [Unknown]
